FAERS Safety Report 5226495-1 (Version None)
Quarter: 2007Q1

REPORT INFORMATION
  Report Type: 
  Country: None (occurrence: None)
  Receive Date: 20061201
  Receipt Date: 20060919
  Transmission Date: 20070707
  Serious: No
  Sender: FDA-Public Use
  Company Number: US200609004995

PATIENT
  Age: 54 Year
  Sex: Female

DRUGS (2)
  1. CYMBALTA [Suspect]
     Dosage: SEE IMAGE
     Dates: start: 20060414, end: 20060831
  2. CYMBALTA [Suspect]
     Dosage: SEE IMAGE
     Dates: start: 20060919

REACTIONS (1)
  - DIVERTICULITIS [None]
